FAERS Safety Report 7335018-2 (Version None)
Quarter: 2011Q1

REPORT INFORMATION
  Report Type: 
  Country: None (occurrence: None)
  Receive Date: 20110307
  Receipt Date: 20110303
  Transmission Date: 20110831
  Serious: Yes (Other)
  Sender: FDA-Public Use
  Company Number: IT-ROCHE-763215

PATIENT
  Sex: Female

DRUGS (2)
  1. ROCEPHIN [Suspect]
     Route: 030
     Dates: start: 20110215, end: 20110215
  2. AMPLITAL [Suspect]
     Route: 048
     Dates: start: 20110215, end: 20110215

REACTIONS (2)
  - SYNCOPE [None]
  - URTICARIA [None]
